FAERS Safety Report 9915937 (Version 1)
Quarter: 2014Q1

REPORT INFORMATION
  Report Type: Spontaneous
  Country: US (occurrence: US)
  Receive Date: 20140221
  Receipt Date: 20140221
  Transmission Date: 20141002
  Serious: No
  Sender: FDA-Public Use
  Company Number: US-009507513-1402USA009660

PATIENT
  Sex: Female

DRUGS (3)
  1. MONTELUKAST SODIUM [Suspect]
     Dosage: UNK
     Route: 048
     Dates: start: 2014, end: 2014
  2. MONTELUKAST SODIUM [Suspect]
     Dosage: UNK
     Route: 048
  3. AMOXICILLIN [Concomitant]

REACTIONS (4)
  - Headache [Recovered/Resolved]
  - Insomnia [Recovered/Resolved]
  - Insomnia [Unknown]
  - Headache [Unknown]
